FAERS Safety Report 9536778 (Version 2)
Quarter: 2013Q3

REPORT INFORMATION
  Report Type: Report from Study
  Country: KR (occurrence: KR)
  Receive Date: 20130919
  Receipt Date: 20130924
  Transmission Date: 20140515
  Serious: Yes (Other)
  Sender: FDA-Public Use
  Company Number: KR-ASTRAZENECA-2013SE69503

PATIENT
  Sex: 0

DRUGS (1)
  1. MEPIVACAINE [Suspect]
     Indication: NERVE BLOCK
     Route: 053

REACTIONS (1)
  - Diaphragmatic paralysis [Unknown]
